FAERS Safety Report 7720703-0 (Version None)
Quarter: 2011Q3

REPORT INFORMATION
  Report Type: 
  Country: None (occurrence: None)
  Receive Date: 20110831
  Receipt Date: 20110825
  Transmission Date: 20111222
  Serious: Yes (Death, Other)
  Sender: FDA-Public Use
  Company Number: PHHY2011CR76362

PATIENT
  Age: 71 Year
  Sex: Male

DRUGS (2)
  1. EXFORGE [Suspect]
     Indication: HYPERTENSION
     Dosage: 160 MG VALS AND 5 MG AMLO
  2. CHEMOTHERAPEUTICS NOS [Concomitant]

REACTIONS (4)
  - METASTASES TO LUNG [None]
  - COLON CANCER [None]
  - DEATH [None]
  - METASTASES TO LIVER [None]
